FAERS Safety Report 22092912 (Version 1)
Quarter: 2023Q1

REPORT INFORMATION
  Report Type: Spontaneous
  Country: US (occurrence: None)
  Receive Date: 20230313
  Receipt Date: 20230313
  Transmission Date: 20230418
  Serious: No
  Sender: FDA-Public Use
  Company Number: None

PATIENT
  Age: 72 Year
  Sex: Female

DRUGS (6)
  1. NIACIN [Suspect]
     Active Substance: NIACIN
     Indication: Fungal infection
     Route: 065
  2. CABOMETYX [Suspect]
     Active Substance: CABOZANTINIB S-MALATE
     Indication: Renal cell carcinoma stage IV
     Dosage: 20 MG ORAL
     Route: 048
  3. Levothyroxine sodium (SYNTHROID) [Concomitant]
  4. OMEPRAZOLE [Concomitant]
     Active Substance: OMEPRAZOLE
  5. OPDIVO [Concomitant]
     Active Substance: NIVOLUMAB
     Dates: start: 20220103, end: 20220325
  6. DIFLUCAN [Suspect]
     Active Substance: FLUCONAZOLE

REACTIONS (6)
  - Alanine aminotransferase increased [None]
  - Aspartate aminotransferase increased [None]
  - Condition aggravated [None]
  - Blood pressure increased [None]
  - Weight decreased [None]
  - Hyperglycaemia [None]
